FAERS Safety Report 20317411 (Version 1)
Quarter: 2022Q1

REPORT INFORMATION
  Report Type: Spontaneous
  Country: US (occurrence: US)
  Receive Date: 20220110
  Receipt Date: 20220110
  Transmission Date: 20220424
  Serious: Yes (Other)
  Sender: FDA-Public Use
  Company Number: US-JNJFOC-20220110125

PATIENT
  Sex: Female

DRUGS (2)
  1. RYBREVANT [Suspect]
     Active Substance: AMIVANTAMAB-VMJW
     Indication: Product used for unknown indication
     Route: 065
  2. TAGRISSO [Concomitant]
     Active Substance: OSIMERTINIB
     Indication: Product used for unknown indication
     Route: 065

REACTIONS (9)
  - Skin haemorrhage [Unknown]
  - Gingival bleeding [Unknown]
  - Heart rate increased [Unknown]
  - Fatigue [Unknown]
  - Hypersomnia [Unknown]
  - Myalgia [Unknown]
  - Asthenia [Unknown]
  - Pyrexia [Unknown]
  - Adverse drug reaction [Unknown]
